FAERS Safety Report 20222609 (Version 1)
Quarter: 2021Q4

REPORT INFORMATION
  Report Type: Report from Study
  Country: US (occurrence: US)
  Receive Date: 20211223
  Receipt Date: 20211223
  Transmission Date: 20220303
  Serious: Yes (Hospitalization, Other)
  Sender: FDA-Public Use
  Company Number: US-ABBVIE-21K-163-4209503-00

PATIENT
  Sex: Male

DRUGS (1)
  1. IMBRUVICA [Suspect]
     Active Substance: IBRUTINIB
     Indication: Product used for unknown indication
     Route: 048

REACTIONS (7)
  - Autoimmune haemolytic anaemia [Unknown]
  - Hospitalisation [Unknown]
  - Emergency care [Unknown]
  - Memory impairment [Unknown]
  - Confusional state [Unknown]
  - Fall [Unknown]
  - Blood potassium decreased [Unknown]
